FAERS Safety Report 5249632-1 (Version None)
Quarter: 2007Q1

REPORT INFORMATION
  Report Type: 
  Country: None (occurrence: None)
  Receive Date: 20070228
  Receipt Date: 20060522
  Transmission Date: 20070707
  Serious: No
  Sender: FDA-Public Use
  Company Number: US-GLAXOSMITHKLINE-A0606513A

PATIENT
  Age: 44 Year
  Sex: Female

DRUGS (4)
  1. IMITREX [Suspect]
     Indication: MIGRAINE
     Route: 058
     Dates: start: 20050101
  2. TOPAMAX [Concomitant]
  3. SEROQUEL [Concomitant]
  4. IMITREX [Concomitant]

REACTIONS (1)
  - INJECTION SITE IRRITATION [None]
